FAERS Safety Report 11461200 (Version 1)
Quarter: 2015Q3

REPORT INFORMATION
  Report Type: Spontaneous
  Country: US (occurrence: US)
  Receive Date: 20150831
  Receipt Date: 20150831
  Transmission Date: 20151125
  Serious: Yes (Death)
  Sender: FDA-Public Use
  Company Number: US-ELI_LILLY_AND_COMPANY-US200809003248

PATIENT
  Age: 24 Year
  Sex: Female
  Weight: 52.15 kg

DRUGS (3)
  1. DOXYCYCLINE. [Concomitant]
     Active Substance: DOXYCYCLINE
     Indication: ACNE
  2. CLONOPIN [Concomitant]
     Active Substance: CLONAZEPAM
     Indication: ANXIETY
  3. CYMBALTA [Suspect]
     Active Substance: DULOXETINE HYDROCHLORIDE
     Indication: DEPRESSION
     Dosage: UNK, UNK
     Dates: start: 20080904

REACTIONS (9)
  - Dizziness [Unknown]
  - Crying [Unknown]
  - Personality change [Unknown]
  - Completed suicide [Fatal]
  - Weight decreased [Unknown]
  - Suicidal ideation [Unknown]
  - Disorientation [Unknown]
  - Abnormal behaviour [Unknown]
  - Sedation [Unknown]

NARRATIVE: CASE EVENT DATE: 200809
